FAERS Safety Report 4423940-6 (Version None)
Quarter: 2004Q3

REPORT INFORMATION
  Report Type: 
  Country: None (occurrence: None)
  Receive Date: 20040805
  Receipt Date: 20040722
  Transmission Date: 20050211
  Serious: Yes (Disabling, Congenital Anomaly)
  Sender: FDA-Public Use
  Company Number: 04P-056-0257731-00

PATIENT
  Age: 1 Day
  Sex: Male
  Weight: 3500 kg

DRUGS (1)
  1. DEPAKINE TABLETS (SODIUM VALPROATE) (SODIUM VALPROATE) (SODIUM VALPROA [Suspect]

REACTIONS (13)
  - ABNORMAL BEHAVIOUR [None]
  - AMINOACIDURIA [None]
  - AUTISM [None]
  - COMMUNICATION DISORDER [None]
  - CYSTINURIA [None]
  - DEVELOPMENTAL DELAY [None]
  - DRUG EXPOSURE DURING PREGNANCY [None]
  - FEEDING DISORDER [None]
  - INFECTION [None]
  - MENTAL DISORDER [None]
  - RESPIRATORY DISTRESS [None]
  - SPEECH DISORDER DEVELOPMENTAL [None]
  - URINARY TRACT INFECTION [None]
